FAERS Safety Report 15489811 (Version 1)
Quarter: 2018Q4

REPORT INFORMATION
  Report Type: Spontaneous
  Country: DE (occurrence: DE)
  Receive Date: 20181011
  Receipt Date: 20181011
  Transmission Date: 20190205
  Serious: Yes (Death)
  Sender: FDA-Public Use
  Company Number: DE-LANNETT COMPANY, INC.-DE-2018LAN001190

PATIENT
  Age: 98 Year
  Sex: Male
  Weight: 73 kg

DRUGS (4)
  1. MORPHINE SULFATE. [Suspect]
     Active Substance: MORPHINE SULFATE
     Indication: PALLIATIVE CARE
     Dosage: 200 MG/50 ML
     Route: 042
  2. MORPHINE SULFATE. [Suspect]
     Active Substance: MORPHINE SULFATE
     Indication: PAIN
  3. OXYCODONE [Concomitant]
     Active Substance: OXYCODONE
     Indication: PALLIATIVE CARE
     Dosage: 15 MG, QD (THERAPY DAY 1)
     Route: 048
  4. OXYCODONE [Concomitant]
     Active Substance: OXYCODONE
     Dosage: 20 MG, QD (THERAPY DAY 2)
     Route: 048

REACTIONS (1)
  - Toxicity to various agents [Fatal]
